FAERS Safety Report 5674697-2 (Version None)
Quarter: 2008Q1

REPORT INFORMATION
  Report Type: 
  Country: None (occurrence: None)
  Receive Date: 20080320
  Receipt Date: 20080317
  Transmission Date: 20080703
  Serious: Yes (Disabling)
  Sender: FDA-Public Use
  Company Number: B0511990A

PATIENT
  Age: 65 Year
  Sex: Female

DRUGS (4)
  1. VALTREX [Suspect]
     Indication: HERPES ZOSTER
     Dosage: 1000MG THREE TIMES PER DAY
     Route: 048
     Dates: start: 20080308, end: 20080309
  2. ALFAROL [Concomitant]
     Route: 048
  3. LOXONIN [Concomitant]
     Route: 048
  4. ANDERM [Concomitant]
     Route: 061

REACTIONS (1)
  - MONOPLEGIA [None]
